FAERS Safety Report 20156714 (Version 1)
Quarter: 2021Q4

REPORT INFORMATION
  Report Type: Spontaneous
  Country: GB (occurrence: GB)
  Receive Date: 20211207
  Receipt Date: 20211207
  Transmission Date: 20220303
  Serious: Yes (Other)
  Sender: FDA-Public Use
  Company Number: None

PATIENT
  Age: 53 Year
  Sex: Female
  Weight: 95 kg

DRUGS (2)
  1. FLUTICASONE FUROATE [Suspect]
     Active Substance: FLUTICASONE FUROATE
     Indication: Allergic sinusitis
     Dosage: 2 DF, QD TWO SPRAYS EACH NOSTRIL DAILY
     Route: 045
     Dates: start: 20211129, end: 20211129
  2. XYLOMETAZOLINE HYDROCHLORIDE [Concomitant]
     Active Substance: XYLOMETAZOLINE HYDROCHLORIDE
     Indication: Allergic sinusitis
     Dosage: UNK
     Route: 065

REACTIONS (2)
  - Wheezing [Recovering/Resolving]
  - Allergic cough [Recovering/Resolving]

NARRATIVE: CASE EVENT DATE: 20211129
